FAERS Safety Report 7604789-X (Version None)
Quarter: 2011Q3

REPORT INFORMATION
  Report Type: 
  Country: None (occurrence: None)
  Receive Date: 20110712
  Receipt Date: 20110707
  Transmission Date: 20111222
  Serious: Yes (Hospitalization, Other)
  Sender: FDA-Public Use
  Company Number: US-ABBOTT-11P-163-0733102-00

PATIENT
  Sex: Female
  Weight: 79.904 kg

DRUGS (16)
  1. CALCIUM AND VITAMIN D [Concomitant]
     Indication: VITAMIN SUPPLEMENTATION
     Route: 048
  2. SIMVASTATIN [Concomitant]
     Indication: BLOOD CHOLESTEROL INCREASED
     Route: 048
  3. LISINOPRIL [Concomitant]
     Indication: HYPERTENSION
     Route: 048
  4. PRESERVATION EYE VITAMIN [Concomitant]
     Indication: MACULAR DEGENERATION
     Route: 047
  5. DEPAKOTE ER [Suspect]
     Indication: BIPOLAR DISORDER
  6. ASPIRIN [Concomitant]
     Indication: PROPHYLAXIS
     Route: 048
  7. TRAZODONE HCL [Concomitant]
     Indication: SLEEP DISORDER THERAPY
     Route: 048
  8. SYNTHROID [Concomitant]
     Indication: HYPOTHYROIDISM
     Dosage: ALTERNATING WITH 175 MCG
     Route: 048
  9. DEPAKOTE ER [Suspect]
     Indication: MANIA
     Route: 048
     Dates: start: 19940101
  10. JANUVIA [Concomitant]
     Indication: DIABETES MELLITUS
     Route: 048
  11. LEVOTHYROXINE SODIUM [Concomitant]
     Indication: HYPOTHYROIDISM
  12. DETROL LA [Concomitant]
     Indication: HYPERTONIC BLADDER
     Route: 048
  13. SENIOR VITAMIN [Concomitant]
     Indication: VITAMIN SUPPLEMENTATION
     Route: 048
  14. OMEGA 3 KRILL OIL [Concomitant]
     Indication: BLOOD CHOLESTEROL INCREASED
  15. BIOTIN [Concomitant]
     Indication: VITAMIN SUPPLEMENTATION
     Route: 048
  16. SYNTHROID [Concomitant]
     Indication: HYPOTHYROIDISM
     Dosage: ALTERNATING WITH 150 MCG
     Route: 048

REACTIONS (7)
  - MALAISE [None]
  - BRONCHITIS [None]
  - NAUSEA [None]
  - HEADACHE [None]
  - HYPONATRAEMIA [None]
  - SINUSITIS [None]
  - BREATH SOUNDS ABNORMAL [None]
